FAERS Safety Report 7066511-8 (Version None)
Quarter: 2010Q4

REPORT INFORMATION
  Report Type: 
  Country: None (occurrence: None)
  Receive Date: 20101027
  Receipt Date: 20100312
  Transmission Date: 20110411
  Serious: No
  Sender: FDA-Public Use
  Company Number: US-WYE-H14108910

PATIENT
  Sex: Female
  Weight: 64.47 kg

DRUGS (1)
  1. PREMPRO [Suspect]
     Indication: HORMONE THERAPY
     Route: 048
     Dates: start: 20100309

REACTIONS (1)
  - ABDOMINAL PAIN [None]
